FAERS Safety Report 10344075 (Version 3)
Quarter: 2014Q3

REPORT INFORMATION
  Report Type: Report from Study
  Country: CA (occurrence: CA)
  Receive Date: 20140728
  Receipt Date: 20140731
  Transmission Date: 20150326
  Serious: No
  Sender: FDA-Public Use
  Company Number: CA-ROCHE-1335553

PATIENT
  Age: 54 Year
  Sex: Female
  Weight: 127.9 kg

DRUGS (4)
  1. METHOTREXATE [Concomitant]
     Active Substance: METHOTREXATE
  2. ACTEMRA [Suspect]
     Active Substance: TOCILIZUMAB
     Indication: RHEUMATOID ARTHRITIS
     Route: 042
     Dates: start: 20121010
  3. PARIET [Concomitant]
     Active Substance: RABEPRAZOLE SODIUM
  4. INDOCID [Concomitant]
     Active Substance: INDOMETHACIN

REACTIONS (7)
  - Oral infection [Unknown]
  - Sinusitis [Recovered/Resolved]
  - Arthralgia [Unknown]
  - Hypertension [Unknown]
  - Peripheral swelling [Unknown]
  - Aphthous stomatitis [Not Recovered/Not Resolved]
  - Ear infection [Recovered/Resolved]

NARRATIVE: CASE EVENT DATE: 2014
